FAERS Safety Report 15209655 (Version 1)
Quarter: 2018Q3

REPORT INFORMATION
  Report Type: Spontaneous
  Country: GB (occurrence: GB)
  Receive Date: 20180727
  Receipt Date: 20180727
  Transmission Date: 20181010
  Serious: Yes (Other)
  Sender: FDA-Public Use
  Company Number: GB-TEVA-2018-GB-931277

PATIENT
  Age: 93 Year
  Sex: Female

DRUGS (13)
  1. SIMVASTATIN. [Concomitant]
     Active Substance: SIMVASTATIN
  2. POTASSIUM [Concomitant]
     Active Substance: POTASSIUM
  3. ISOSORBIDE MONONITRATE. [Concomitant]
     Active Substance: ISOSORBIDE MONONITRATE
  4. BUMETANIDE. [Concomitant]
     Active Substance: BUMETANIDE
  5. APIXABAN [Concomitant]
     Active Substance: APIXABAN
  6. LANSOPRAZOLE. [Suspect]
     Active Substance: LANSOPRAZOLE
     Indication: PROPHYLAXIS AGAINST GASTROINTESTINAL ULCER
     Route: 048
  7. FYBOGEL [Concomitant]
     Active Substance: PLANTAGO OVATA SEED
  8. BISOPROLOL [Concomitant]
     Active Substance: BISOPROLOL
  9. ADCAL [Concomitant]
     Active Substance: CALCIUM CARBONATE
  10. AMOXICILLIN. [Concomitant]
     Active Substance: AMOXICILLIN
  11. CLOPIDOGREL [Concomitant]
     Active Substance: CLOPIDOGREL BISULFATE
  12. FLUCLOXACILLIN [Concomitant]
     Active Substance: FLUCLOXACILLIN
  13. FELODIPINE. [Concomitant]
     Active Substance: FELODIPINE

REACTIONS (1)
  - Inappropriate antidiuretic hormone secretion [Unknown]

NARRATIVE: CASE EVENT DATE: 20160626
